FAERS Safety Report 9100805 (Version 1)
Quarter: 2013Q1

REPORT INFORMATION
  Report Type: Spontaneous
  Country: US (occurrence: None)
  Receive Date: 20130220
  Receipt Date: 20130220
  Transmission Date: 20140127
  Serious: Yes (Life-Threatening, Other)
  Sender: FDA-Public Use
  Company Number: None

PATIENT
  Age: 74 Year
  Sex: Male
  Weight: 162.84 kg

DRUGS (1)
  1. AZITHROMYCIN 250 MG TAB 5DAY MFG- APOTEX - 2400 N COMMERCE PKWY WESTIN, FLORIDA 33326 [Suspect]
     Indication: SINUSITIS
     Dosage: 2PILLS  1ST DAY  250 MG?AND 1 PILL EACH DAY TO  5 DAY
     Route: 048
     Dates: start: 20121217

REACTIONS (2)
  - Abdominal pain upper [None]
  - Somnolence [None]
